FAERS Safety Report 9266986 (Version 1)
Quarter: 2013Q2

REPORT INFORMATION
  Report Type: Spontaneous
  Country: US (occurrence: US)
  Receive Date: 20130502
  Receipt Date: 20130502
  Transmission Date: 20140414
  Serious: No
  Sender: FDA-Public Use
  Company Number: US-PFIZER INC-2013133800

PATIENT
  Age: 61 Year
  Sex: 0

DRUGS (2)
  1. CADUET [Suspect]
     Indication: BLOOD PRESSURE ABNORMAL
     Dosage: 10/20MG, 1X/DAY
  2. CADUET [Suspect]
     Indication: BLOOD CHOLESTEROL ABNORMAL

REACTIONS (1)
  - Drug ineffective [Unknown]
